FAERS Safety Report 10745486 (Version 1)
Quarter: 2015Q1

REPORT INFORMATION
  Report Type: Spontaneous
  Country: GB (occurrence: GB)
  Receive Date: 20150128
  Receipt Date: 20150128
  Transmission Date: 20150721
  Serious: Yes (Disabling, Other)
  Sender: FDA-Public Use
  Company Number: GB-ASTRAZENECA-2015SE06143

PATIENT
  Age: 50 Year
  Sex: Female
  Weight: 63.5 kg

DRUGS (7)
  1. EZETIMIBE. [Suspect]
     Active Substance: EZETIMIBE
  2. ASPIRIN. [Concomitant]
     Active Substance: ASPIRIN
  3. BISOPROLOL FUMARATE. [Concomitant]
     Active Substance: BISOPROLOL FUMARATE
  4. RAMIPRIL. [Concomitant]
     Active Substance: RAMIPRIL
  5. ATORVASTATIN [Suspect]
     Active Substance: ATORVASTATIN
     Route: 048
     Dates: start: 20131110, end: 201411
  6. ATORVASTATIN [Suspect]
     Active Substance: ATORVASTATIN
     Route: 048
  7. CRESTOR [Suspect]
     Active Substance: ROSUVASTATIN CALCIUM
     Route: 048

REACTIONS (3)
  - Myalgia [Not Recovered/Not Resolved]
  - Feeling abnormal [Not Recovered/Not Resolved]
  - Asthenia [Not Recovered/Not Resolved]

NARRATIVE: CASE EVENT DATE: 20131110
